FAERS Safety Report 20126558 (Version 1)
Quarter: 2021Q4

REPORT INFORMATION
  Report Type: Spontaneous
  Country: CA (occurrence: CA)
  Receive Date: 20211129
  Receipt Date: 20211129
  Transmission Date: 20220303
  Serious: Yes (Hospitalization)
  Sender: FDA-Public Use
  Company Number: CA-TEVA-2021-CA-1981363

PATIENT
  Age: 90 Year
  Sex: Male

DRUGS (5)
  1. IBUPROFEN [Interacting]
     Active Substance: IBUPROFEN
     Indication: Swelling
     Route: 048
  2. IBUPROFEN [Interacting]
     Active Substance: IBUPROFEN
     Indication: Pain
  3. HYDROMORPHONE [Concomitant]
     Active Substance: HYDROMORPHONE
  4. TINZAPARIN [Concomitant]
     Active Substance: TINZAPARIN
  5. TRAZODONE [Concomitant]
     Active Substance: TRAZODONE HYDROCHLORIDE

REACTIONS (4)
  - Acute kidney injury [Unknown]
  - Confusional state [Unknown]
  - Drug-disease interaction [Unknown]
  - Muscular weakness [Unknown]
